FAERS Safety Report 6079430-0 (Version None)
Quarter: 2009Q1

REPORT INFORMATION
  Report Type: 
  Country: None (occurrence: None)
  Receive Date: 20090216
  Receipt Date: 20090205
  Transmission Date: 20090719
  Serious: Yes (Hospitalization, Other)
  Sender: FDA-Public Use
  Company Number: PHHY2009BR04271

PATIENT
  Age: 75 Year
  Sex: Female
  Weight: 90 kg

DRUGS (9)
  1. DIOVAN HCT [Suspect]
     Indication: HYPERTENSION
     Dosage: 160/12.5 MG DAILY
     Route: 048
     Dates: start: 20070101
  2. HUMULIN R [Suspect]
     Indication: TYPE 2 DIABETES MELLITUS
     Dosage: 25 IU, TID
     Route: 058
     Dates: start: 20070101
  3. ATENOLOL [Concomitant]
     Indication: HYPERTENSION
     Dosage: 50 MG 1 TABLET DAILY
     Route: 048
     Dates: start: 20070101
  4. SIMVASTATIN [Concomitant]
     Indication: BLOOD CHOLESTEROL
     Dosage: 20 MG
     Route: 048
     Dates: start: 20070101
  5. LANSOPRAZOLE [Concomitant]
     Indication: OESOPHAGITIS
     Dosage: 30 MG, ONE TABLET DAILY
     Route: 048
     Dates: start: 20080101
  6. PLAVIX [Concomitant]
     Indication: THROMBOSIS
     Dosage: 75 MG, 1 TAB DAILY
     Dates: start: 20080101
  7. AAS [Concomitant]
     Indication: ANGIOPLASTY
     Dosage: 100 MG, 2 TABLETS DAILY
     Route: 048
     Dates: start: 20080901
  8. SALONPAS [Concomitant]
     Indication: PAIN
     Dosage: 20 MG, 2 OR 3 APPLICATIONS DAILY
     Dates: start: 20050101
  9. COUMADIN [Concomitant]
     Dosage: ONE TABLET DAILY
     Route: 048
     Dates: start: 20080101, end: 20080801

REACTIONS (5)
  - ANGIOPLASTY [None]
  - BONE DISORDER [None]
  - BONE PAIN [None]
  - VEIN DISORDER [None]
  - WEIGHT INCREASED [None]
